FAERS Safety Report 23244653 (Version 3)
Quarter: 2024Q2

REPORT INFORMATION
  Report Type: Spontaneous
  Country: US (occurrence: US)
  Receive Date: 20231130
  Receipt Date: 20240507
  Transmission Date: 20240716
  Serious: No
  Sender: FDA-Public Use
  Company Number: US-BRISTOL-MYERS SQUIBB COMPANY-2023-171393

PATIENT
  Age: 54 Year
  Sex: Female

DRUGS (4)
  1. ORENCIA [Suspect]
     Active Substance: ABATACEPT
     Indication: Rheumatoid arthritis
     Route: 058
     Dates: start: 202311
  2. RINVOQ [Concomitant]
     Active Substance: UPADACITINIB
     Indication: Product used for unknown indication
     Dosage: EXTENDED RELEASE.
  3. KEVZARA [Concomitant]
     Active Substance: SARILUMAB
     Indication: Product used for unknown indication
     Dosage: EXTENDED RELEASE.
  4. XELJANZ [Concomitant]
     Active Substance: TOFACITINIB CITRATE
     Indication: Product used for unknown indication
     Dosage: EXTENDED RELEASE.

REACTIONS (5)
  - Pain [Unknown]
  - General physical health deterioration [Unknown]
  - Drug ineffective [Unknown]
  - Joint swelling [Unknown]
  - Arthralgia [Unknown]
